FAERS Safety Report 14265684 (Version 1)
Quarter: 2017Q4

REPORT INFORMATION
  Report Type: Spontaneous
  Country: IE (occurrence: IE)
  Receive Date: 20171208
  Receipt Date: 20171208
  Transmission Date: 20180321
  Serious: Yes (Life-Threatening, Hospitalization)
  Sender: FDA-Public Use
  Company Number: IE-BAUSCH-BL-2017-032738

PATIENT
  Age: 35 Year
  Sex: Female
  Weight: 91 kg

DRUGS (12)
  1. LANTUS [Suspect]
     Active Substance: INSULIN GLARGINE
     Route: 058
  2. LYRICA [Concomitant]
     Active Substance: PREGABALIN
     Indication: PRODUCT USED FOR UNKNOWN INDICATION
     Route: 065
  3. METFORMIN [Suspect]
     Active Substance: METFORMIN HYDROCHLORIDE
     Indication: TYPE 1 DIABETES MELLITUS
     Route: 065
     Dates: start: 20150408
  4. SERTRALINE [Concomitant]
     Active Substance: SERTRALINE HYDROCHLORIDE
     Indication: PRODUCT USED FOR UNKNOWN INDICATION
     Route: 065
  5. L-THYROXINE [Concomitant]
     Active Substance: LEVOTHYROXINE
     Indication: PRODUCT USED FOR UNKNOWN INDICATION
     Route: 065
  6. HUMALOG [Suspect]
     Active Substance: INSULIN LISPRO
     Dosage: FORM:UNKNOWN
     Route: 058
  7. FOLIC ACID. [Concomitant]
     Active Substance: FOLIC ACID
     Indication: PRODUCT USED FOR UNKNOWN INDICATION
     Route: 065
  8. AMITRIPTYLINE [Concomitant]
     Active Substance: AMITRIPTYLINE
     Indication: PRODUCT USED FOR UNKNOWN INDICATION
     Route: 065
  9. HUMALOG [Suspect]
     Active Substance: INSULIN LISPRO
     Dosage: FORM:UNKNOWN
     Route: 058
     Dates: start: 20021016
  10. LANTUS [Suspect]
     Active Substance: INSULIN GLARGINE
     Route: 058
  11. HUMALOG [Suspect]
     Active Substance: INSULIN LISPRO
     Indication: TYPE 1 DIABETES MELLITUS
     Dosage: FORM:UNKNOWN
     Route: 058
  12. LANTUS [Suspect]
     Active Substance: INSULIN GLARGINE
     Indication: TYPE 1 DIABETES MELLITUS
     Route: 058
     Dates: start: 20021016

REACTIONS (8)
  - Product use issue [Unknown]
  - Caesarean section [Recovered/Resolved]
  - Diabetes mellitus inadequate control [Recovered/Resolved]
  - Exposure during pregnancy [Unknown]
  - Postpartum haemorrhage [Recovered/Resolved]
  - Diabetes mellitus inadequate control [Recovered/Resolved]
  - Diabetes mellitus inadequate control [Recovered/Resolved]
  - Hypoglycaemia [Recovered/Resolved]

NARRATIVE: CASE EVENT DATE: 20170420
